FAERS Safety Report 8388800-7 (Version None)
Quarter: 2012Q2

REPORT INFORMATION
  Report Type: 
  Country: None (occurrence: None)
  Receive Date: 20120528
  Receipt Date: 20120515
  Transmission Date: 20120825
  Serious: Yes (Other)
  Sender: FDA-Public Use
  Company Number: DE-RANBAXY-2012R1-56498

PATIENT
  Sex: Male

DRUGS (1)
  1. MINOCYCLINE HCL [Suspect]
     Indication: CONVULSION
     Dosage: 50MG BID
     Route: 065

REACTIONS (4)
  - FURUNCLE [None]
  - ACNE [None]
  - OFF LABEL USE [None]
  - SKIN DISORDER [None]
